FAERS Safety Report 5343335-0 (Version None)
Quarter: 2007Q2

REPORT INFORMATION
  Report Type: 
  Country: None (occurrence: None)
  Receive Date: 20070503
  Receipt Date: 20060328
  Transmission Date: 20071010
  Serious: Yes (Hospitalization)
  Sender: FDA-Public Use
  Company Number: US200603006768

PATIENT
  Age: 61 Year
  Sex: Female

DRUGS (3)
  1. HUMATROPE [Suspect]
  2. HUMATROPEN (HUMATROPEN) PEN,REUSABLE [Concomitant]
  3. MORPHINE SULFATE [Concomitant]

REACTIONS (5)
  - ARTHRALGIA [None]
  - DISCOMFORT [None]
  - IMMUNE SYSTEM DISORDER [None]
  - MALAISE [None]
  - PAIN [None]
